FAERS Safety Report 24870810 (Version 1)
Quarter: 2025Q1

REPORT INFORMATION
  Report Type: Spontaneous
  Country: US (occurrence: US)
  Receive Date: 20250121
  Receipt Date: 20250121
  Transmission Date: 20250409
  Serious: No
  Sender: ROCHE
  Company Number: US-ROCHE-10000185094

PATIENT
  Sex: Male

DRUGS (13)
  1. ESBRIET [Suspect]
     Active Substance: PIRFENIDONE
     Indication: Type 2 diabetes mellitus
     Dosage: TAKE 1 TABLET BY MOUTH 3 TIMES DAILY X1 WK, THEN 2 TABS 3 TIMES DAILY X1 WK, THEN 3 TABS 3 TIMES DAI
     Route: 048
  2. JARDIANCE [Concomitant]
     Active Substance: EMPAGLIFLOZIN
  3. METFORMIN HC POW [Concomitant]
  4. PREDNISONE [Concomitant]
     Active Substance: PREDNISONE
  5. ZINC [Concomitant]
     Active Substance: ZINC
  6. amlodipine bsus [Concomitant]
  7. ATORVASTATIN [Concomitant]
     Active Substance: ATORVASTATIN
  8. BYSTOLIC [Concomitant]
     Active Substance: NEBIVOLOL HYDROCHLORIDE
  9. CLONIDINE [Concomitant]
     Active Substance: CLONIDINE
  10. OMEPRAZOLE [Concomitant]
     Active Substance: OMEPRAZOLE
  11. SPIRONOLACTONE [Concomitant]
     Active Substance: SPIRONOLACTONE
  12. VALSARTAN [Concomitant]
     Active Substance: VALSARTAN
  13. XARELTO [Concomitant]
     Active Substance: RIVAROXABAN

REACTIONS (5)
  - Off label use [Unknown]
  - Cough [Unknown]
  - Sputum increased [Unknown]
  - Dyspnoea [Unknown]
  - Urticaria [Unknown]
